FAERS Safety Report 11455938 (Version 2)
Quarter: 2015Q4

REPORT INFORMATION
  Report Type: Report from Study
  Country: US (occurrence: US)
  Receive Date: 20150903
  Receipt Date: 20151007
  Transmission Date: 20160304
  Serious: Yes (Death, Hospitalization, Other)
  Sender: FDA-Public Use
  Company Number: US-JNJFOC-20150901919

PATIENT
  Sex: Male

DRUGS (17)
  1. FINASTERIDE. [Concomitant]
     Active Substance: FINASTERIDE
  2. ALLOPURINOL. [Concomitant]
     Active Substance: ALLOPURINOL
  3. NORCO [Concomitant]
     Active Substance: ACETAMINOPHEN\HYDROCODONE BITARTRATE
  4. HYDROCHLOROTHIAZIDE. [Concomitant]
     Active Substance: HYDROCHLOROTHIAZIDE
  5. METOPROLOL [Concomitant]
     Active Substance: METOPROLOL
  6. IMBRUVICA [Suspect]
     Active Substance: IBRUTINIB
     Indication: CHRONIC LYMPHOCYTIC LEUKAEMIA
     Route: 048
     Dates: start: 2015
  7. FENTANYL. [Concomitant]
     Active Substance: FENTANYL
  8. ZOCOR [Concomitant]
     Active Substance: SIMVASTATIN
  9. ALBUTEROL. [Concomitant]
     Active Substance: ALBUTEROL
  10. IRON [Concomitant]
     Active Substance: IRON
  11. TOPROL XL [Concomitant]
     Active Substance: METOPROLOL SUCCINATE
  12. TAXOL [Concomitant]
     Active Substance: PACLITAXEL
  13. VITAMIN C [Concomitant]
     Active Substance: ASCORBIC ACID
  14. XGEVA [Concomitant]
     Active Substance: DENOSUMAB
  15. CARBOPLATIN. [Concomitant]
     Active Substance: CARBOPLATIN
  16. HYDROCHLOROTHIAZIDE AND LISINOPRIL [Concomitant]
     Active Substance: HYDROCHLOROTHIAZIDE\LISINOPRIL
  17. IMBRUVICA [Suspect]
     Active Substance: IBRUTINIB
     Indication: CHRONIC LYMPHOCYTIC LEUKAEMIA
     Route: 048
     Dates: start: 20150205, end: 2015

REACTIONS (6)
  - Atrial fibrillation [Unknown]
  - Death [Fatal]
  - Tachycardia [Unknown]
  - Lung neoplasm malignant [Unknown]
  - Hypotension [Unknown]
  - Pneumonia [Unknown]

NARRATIVE: CASE EVENT DATE: 2015
